FAERS Safety Report 18585438 (Version 1)
Quarter: 2020Q4

REPORT INFORMATION
  Report Type: Spontaneous
  Country: US (occurrence: US)
  Receive Date: 20201207
  Receipt Date: 20201207
  Transmission Date: 20210114
  Serious: No
  Sender: FDA-Public Use
  Company Number: US-TEVA-2020-US-1856426

PATIENT
  Age: 63 Year
  Sex: Female

DRUGS (1)
  1. CLONAZEPAM TEVA [Suspect]
     Active Substance: CLONAZEPAM
     Indication: ANXIETY
     Dosage: USING AT LEAST A YEAR
     Route: 065

REACTIONS (4)
  - Drug screen negative [Unknown]
  - Drug ineffective [Unknown]
  - Impaired work ability [Unknown]
  - Crying [Unknown]

NARRATIVE: CASE EVENT DATE: 20201126
